FAERS Safety Report 24638048 (Version 7)
Quarter: 2025Q4

REPORT INFORMATION
  Report Type: Report from Study
  Country: CN (occurrence: CN)
  Receive Date: 20241119
  Receipt Date: 20251229
  Transmission Date: 20260118
  Serious: Yes (Hospitalization, Other)
  Sender: Vantive US Healthcare
  Company Number: CN-VANTIVE-2024VAN021115

PATIENT
  Age: 42 Year
  Sex: Female
  Weight: 61.3 kg

DRUGS (26)
  1. DIANEAL [Suspect]
     Active Substance: CALCIUM CHLORIDE\DEXTROSE\MAGNESIUM CHLORIDE\SODIUM CHLORIDE\SODIUM LACTATE
     Indication: Chronic kidney disease
     Dosage: 2L, 2 BAGS PER DAY
  2. DIANEAL [Suspect]
     Active Substance: CALCIUM CHLORIDE\DEXTROSE\MAGNESIUM CHLORIDE\SODIUM CHLORIDE\SODIUM LACTATE
     Dosage: 2L, 2 BAGS PER DAY
  3. DIANEAL [Suspect]
     Active Substance: CALCIUM CHLORIDE\DEXTROSE\MAGNESIUM CHLORIDE\SODIUM CHLORIDE\SODIUM LACTATE
     Indication: Chronic kidney disease
     Dosage: 2L, 1 BAG PER DAY
  4. DIANEAL [Suspect]
     Active Substance: CALCIUM CHLORIDE\DEXTROSE\MAGNESIUM CHLORIDE\SODIUM CHLORIDE\SODIUM LACTATE
     Dosage: 2L, 1 BAG PER DAY
  5. EXTRANEAL [Suspect]
     Active Substance: CALCIUM CHLORIDE\ICODEXTRIN\MAGNESIUM CHLORIDE\SODIUM CHLORIDE\SODIUM LACTATE
     Indication: Chronic kidney disease
     Dosage: 2L, 1 BAG PER DAY
  6. EXTRANEAL [Suspect]
     Active Substance: CALCIUM CHLORIDE\ICODEXTRIN\MAGNESIUM CHLORIDE\SODIUM CHLORIDE\SODIUM LACTATE
     Dosage: 2L, 1 BAG PER DAY
  7. FEBUXOSTAT [Concomitant]
     Active Substance: FEBUXOSTAT
     Indication: Hyperuricaemia
     Dosage: 40 MG, QD (ONCE A DAY)
  8. FERRIC POLYSACCHARIDE COMPLEX [Concomitant]
     Active Substance: FERRIC POLYSACCHARIDE COMPLEX
     Indication: Nephrogenic anaemia
     Dosage: 150 MG, QD (ONCE A DAY)
  9. FOLIC ACID [Concomitant]
     Active Substance: FOLIC ACID
     Indication: Renal failure
     Dosage: 5 MG, QD (ONCE A DAY)
  10. VITAMIN B6 [Concomitant]
     Active Substance: PYRIDOXINE HYDROCHLORIDE
     Indication: Nutritional supplementation
     Dosage: 10 MG, QD (ONCE A DAY)
  11. ATORVASTATIN CALCIUM [Concomitant]
     Active Substance: ATORVASTATIN CALCIUM
     Indication: Hyperlipidaemia
     Dosage: 20 MG, QN (ONCE IN NIGHT)
  12. CINACALCET [Concomitant]
     Active Substance: CINACALCET
     Indication: Hyperparathyroidism secondary
     Dosage: 50 MG, QD (ONCE A DAY)
  13. METOPROLOL [Concomitant]
     Active Substance: METOPROLOL
     Indication: Hypertension
     Dosage: 25 MG, QD (ONCE A DAY)
  14. FENOFIBRATE [Concomitant]
     Active Substance: FENOFIBRATE
     Indication: Hyperlipidaemia
     Dosage: 0.2 G, WEEKLY
  15. ROXADUSTAT [Concomitant]
     Active Substance: ROXADUSTAT
     Indication: Nephrogenic anaemia
     Dosage: 2 TABLETS, BIWEEKLY
  16. SEVELAMER [Concomitant]
     Active Substance: SEVELAMER
     Indication: Hyperphosphataemia
     Dosage: 1 TABLET, TID (THRICE A DAY)
  17. CALCITRIOL [Concomitant]
     Active Substance: CALCITRIOL
     Indication: Nephropathy
     Dosage: 0.75 MICROGRAM, QN (ONCE IN NIGHT)
  18. CALCITRIOL [Concomitant]
     Active Substance: CALCITRIOL
     Indication: Bone disorder
  19. TEPRENONE [Concomitant]
     Active Substance: TEPRENONE
     Indication: Prophylaxis
     Dosage: 50 MG (TIW) THRICE A WEEK
     Dates: start: 20241109, end: 20241116
  20. OMEPRAZOLE [Concomitant]
     Active Substance: OMEPRAZOLE
     Indication: Prophylaxis
     Dosage: 20 MG ONCE A DAY (QD) (ENTERIC COATED)
     Dates: start: 20241109, end: 20241116
  21. AMIKACIN SULFATE [Concomitant]
     Active Substance: AMIKACIN SULFATE
     Indication: Drug therapy
     Dosage: 0.2 G THREE TIMES PER WEEK (TIW)
     Dates: start: 20241111, end: 20241116
  22. FLUCONAZOLE [Concomitant]
     Active Substance: FLUCONAZOLE
     Indication: Antifungal prophylaxis
     Dosage: 100 MG ONCE A DAY (QD)
     Dates: start: 20241115, end: 20241117
  23. CALCITONIN SALMON [Concomitant]
     Active Substance: CALCITONIN SALMON
     Indication: Bone disorder
     Dosage: 50 IU, ONCE A DAY (QD)
     Dates: start: 20241115, end: 20241116
  24. CALCITONIN SALMON [Concomitant]
     Active Substance: CALCITONIN SALMON
     Indication: Nephropathy
  25. L-glutamine and sodium gualenate [Concomitant]
     Indication: Prophylaxis
     Dosage: 0.67 G ONCE
     Dates: start: 20241109, end: 20241109
  26. MIDODRINE HYDROCHLORIDE [Concomitant]
     Active Substance: MIDODRINE HYDROCHLORIDE
     Dosage: 2.5 MG ONCE A DAY (QD)
     Dates: start: 20241116, end: 20241123

REACTIONS (9)
  - Pancreatitis necrotising [Recovered/Resolved]
  - Abdominal pain [Unknown]
  - Pancreatitis relapsing [Unknown]
  - Peritonitis bacterial [Recovered/Resolved]
  - Peritonitis [Recovered/Resolved]
  - Peritoneal cloudy effluent [Unknown]
  - Abdominal pain [Unknown]
  - Diarrhoea [Unknown]
  - Pyrexia [Unknown]

NARRATIVE: CASE EVENT DATE: 20240916
